FAERS Safety Report 25898215 (Version 2)
Quarter: 2025Q4

REPORT INFORMATION
  Report Type: Report from Study
  Country: CA (occurrence: CA)
  Receive Date: 20251008
  Receipt Date: 20251105
  Transmission Date: 20260118
  Serious: Yes (Other)
  Sender: JOHNSON AND JOHNSON
  Company Number: CA-JNJFOC-20250525654

PATIENT
  Age: 61 Year
  Sex: Female

DRUGS (8)
  1. SIMPONI [Suspect]
     Active Substance: GOLIMUMAB
     Indication: Psoriatic arthropathy
     Route: 040
     Dates: start: 20250421
  2. SIMPONI [Suspect]
     Active Substance: GOLIMUMAB
     Route: 040
     Dates: start: 20250423
  3. SIMPONI [Suspect]
     Active Substance: GOLIMUMAB
     Route: 040
     Dates: start: 20250421
  4. SIMPONI [Suspect]
     Active Substance: GOLIMUMAB
     Route: 040
  5. SIMPONI [Suspect]
     Active Substance: GOLIMUMAB
     Route: 040
  6. COVID-19 VACCINE NOS [Suspect]
     Active Substance: COVID-19 VACCINE
     Indication: Prophylaxis
     Route: 065
  7. INFLUENZA VIRUS VACCINE [Suspect]
     Active Substance: INFLUENZA VIRUS VACCINE
     Indication: Product used for unknown indication
     Route: 065
  8. CORTISONE ACETATE [Concomitant]
     Active Substance: CORTISONE ACETATE
     Indication: Product used for unknown indication

REACTIONS (9)
  - Hepatic cirrhosis [Unknown]
  - Tooth extraction [Recovered/Resolved]
  - Psoriasis [Not Recovered/Not Resolved]
  - Haemorrhoids [Unknown]
  - Arthralgia [Recovered/Resolved]
  - Abscess [Recovered/Resolved]
  - Diarrhoea [Unknown]
  - Off label use [Unknown]
  - Rash erythematous [Recovered/Resolved]

NARRATIVE: CASE EVENT DATE: 20250629
